FAERS Safety Report 7928313-7 (Version None)
Quarter: 2011Q4

REPORT INFORMATION
  Report Type: 
  Country: None (occurrence: None)
  Receive Date: 20111118
  Receipt Date: 20111110
  Transmission Date: 20120403
  Serious: Yes (Hospitalization, Other)
  Sender: FDA-Public Use
  Company Number: US-ABBOTT-11P-163-0873836-00

PATIENT
  Sex: Male
  Weight: 83.082 kg

DRUGS (17)
  1. ASPIRIN [Concomitant]
     Indication: CARDIAC DISORDER
     Route: 048
     Dates: start: 20080101
  2. FLOMAX [Concomitant]
     Indication: BENIGN PROSTATIC HYPERPLASIA
     Dosage: AT BEDTIME
     Route: 048
     Dates: start: 20080101
  3. SIMVASTATIN [Concomitant]
     Indication: BLOOD CHOLESTEROL INCREASED
     Dosage: EVERY EVENING
     Route: 048
     Dates: start: 20080101
  4. COUMADIN [Concomitant]
     Indication: CARDIAC VALVE DISEASE
     Dosage: UP TO 9 TABLETS PER WEEK
     Route: 048
     Dates: start: 20080101
  5. HUMIRA [Suspect]
     Indication: ANKYLOSING SPONDYLITIS
     Route: 058
     Dates: start: 20070101, end: 20080101
  6. HUMIRA [Suspect]
     Route: 058
     Dates: start: 20100101
  7. ZYRTEC [Concomitant]
     Indication: HYPERSENSITIVITY
     Route: 048
  8. AMARYL [Concomitant]
     Indication: DIABETES MELLITUS
     Route: 048
     Dates: start: 20080101
  9. LOMOTIL [Concomitant]
     Indication: DIARRHOEA
  10. METOPROLOL TARTRATE [Concomitant]
     Indication: CARDIAC DISORDER
     Route: 048
     Dates: start: 20080101
  11. PLETAL [Concomitant]
     Indication: PERIPHERAL VASCULAR DISORDER
     Route: 048
     Dates: start: 20080101
  12. HUMIRA [Suspect]
     Route: 058
     Dates: end: 20100101
  13. VICODIN ES [Concomitant]
     Indication: PAIN
     Dosage: PRN
     Dates: start: 20080101
  14. OMEPRAZOLE [Concomitant]
     Indication: ULCER
     Route: 048
  15. TIZANIDINE HCL [Concomitant]
     Indication: ANKYLOSING SPONDYLITIS
     Route: 048
     Dates: start: 20080101
  16. TIZANIDINE HCL [Concomitant]
     Indication: MUSCLE RELAXANT THERAPY
  17. CELEBREX [Concomitant]
     Indication: ARTHRITIS
     Route: 048

REACTIONS (8)
  - DYSPNOEA [None]
  - SKIN LESION [None]
  - ARTHRALGIA [None]
  - CARDIAC VALVE DISEASE [None]
  - HEADACHE [None]
  - PALPITATIONS [None]
  - HERPES ZOSTER [None]
  - BLOOD PRESSURE FLUCTUATION [None]
